FAERS Safety Report 8618215-5 (Version None)
Quarter: 2012Q3

REPORT INFORMATION
  Report Type: 
  Country: None (occurrence: None)
  Receive Date: 20120824
  Receipt Date: 20120813
  Transmission Date: 20120928
  Serious: No
  Sender: FDA-Public Use
  Company Number: US-ASTRAZENECA-2011SE09496

PATIENT
  Age: 47 Year
  Sex: Female
  Weight: 102.1 kg

DRUGS (7)
  1. SEROQUEL XR [Suspect]
     Indication: DEPRESSION
     Route: 048
  2. NEXIUM [Concomitant]
  3. ABILIFY [Concomitant]
     Indication: BIPOLAR DISORDER
  4. RESTORIL [Concomitant]
     Indication: SLEEP DISORDER
  5. DEPAKOTE [Concomitant]
     Indication: BIPOLAR DISORDER
  6. CELEXA [Concomitant]
     Indication: BIPOLAR DISORDER
  7. SEROQUEL XR [Suspect]
     Indication: BIPOLAR DISORDER
     Route: 048

REACTIONS (7)
  - FEELING ABNORMAL [None]
  - MIGRAINE [None]
  - DIARRHOEA [None]
  - WEIGHT INCREASED [None]
  - DRUG DOSE OMISSION [None]
  - ANXIETY [None]
  - ADVERSE EVENT [None]
